FAERS Safety Report 6253756-X (Version None)
Quarter: 2009Q2

REPORT INFORMATION
  Report Type: 
  Country: None (occurrence: None)
  Receive Date: 20090630
  Receipt Date: 20090618
  Transmission Date: 20091009
  Serious: Yes (Death)
  Sender: FDA-Public Use
  Company Number: 006527

PATIENT
  Age: 71 Year
  Sex: Male
  Weight: 67 kg

DRUGS (14)
  1. PLETAL [Suspect]
     Indication: PERCUTANEOUS CORONARY INTERVENTION
     Dosage: 100 MG, BID, ORAL
     Route: 048
     Dates: start: 20090519, end: 20090609
  2. PLAVIX [Suspect]
     Dosage: 300 MG, DAILY DOSE, ORAL; 75 MG, QD, ORAL
     Route: 048
     Dates: start: 20090513, end: 20090513
  3. PLAVIX [Suspect]
     Dosage: 300 MG, DAILY DOSE, ORAL; 75 MG, QD, ORAL
     Route: 048
     Dates: start: 20090514, end: 20090518
  4. LAMISIL [Suspect]
     Indication: TINEA INFECTION
     Dosage: 125 MG, QD, ORAL
     Route: 048
     Dates: start: 20090421, end: 20090522
  5. SELARA (EPLERENONE) TABLET (EPLERENONE) [Concomitant]
  6. ITOROL (ISOSORBIDE MONONITRATE) TABLET [Concomitant]
  7. LASIX [Concomitant]
  8. ALLOPURINOL [Concomitant]
  9. BAYASPIRIN (ACETYLSALICYLIC ACID) TABLET [Concomitant]
  10. LOSARTAN POTASSIUM [Concomitant]
  11. SIGMART (NICORANDIL) TABLET [Concomitant]
  12. TAKEPRON (LANSOPRAZOLE) TABLET [Concomitant]
  13. NOVORAPID MIX (INSULIN ASPART (GENETICAL RECOMBINATION) [Concomitant]
  14. LASIX [Concomitant]

REACTIONS (4)
  - CHOLESTASIS [None]
  - HEPATIC FAILURE [None]
  - MULTI-ORGAN FAILURE [None]
  - PLEURAL EFFUSION [None]
